FAERS Safety Report 9626868 (Version 2)
Quarter: 2013Q4

REPORT INFORMATION
  Report Type: Report from Study
  Country: JP (occurrence: JP)
  Receive Date: 20131016
  Receipt Date: 20131101
  Transmission Date: 20140711
  Serious: Yes (Hospitalization, Other)
  Sender: FDA-Public Use
  Company Number: JP-TAKEDA-TCI2013A06138

PATIENT
  Age: 57 Year
  Sex: Female
  Weight: 68.6 kg

DRUGS (4)
  1. ALOGLIPTIN [Suspect]
     Indication: TYPE 2 DIABETES MELLITUS
     Dosage: 12.5 MG, QD
     Route: 048
     Dates: start: 20120428, end: 20120903
  2. MEDET [Concomitant]
     Indication: TYPE 2 DIABETES MELLITUS
     Dosage: 500 MG, 1DAYS
     Route: 048
  3. IRBETAN [Concomitant]
     Route: 048
  4. IRBETAN [Concomitant]
     Route: 048

REACTIONS (1)
  - Colon cancer [Recovering/Resolving]
